FAERS Safety Report 9536239 (Version 4)
Quarter: 2014Q2

REPORT INFORMATION
  Report Type: Spontaneous
  Country: US (occurrence: None)
  Receive Date: 20130507
  Receipt Date: 20140530
  Transmission Date: 20141212
  Serious: Yes (Other)
  Sender: FDA-Public Use
  Company Number: PHEH2013US000550

PATIENT
  Age: 56 Year
  Sex: Female

DRUGS (13)
  1. AFINITOR (RAD) UNKNOWN [Suspect]
     Indication: NEOPLASM MALIGNANT
     Route: 048
     Dates: start: 20121127, end: 20130108
  2. AFINITOR (RAD) UNKNOWN [Suspect]
     Indication: INFLAMMATION
     Route: 048
     Dates: start: 20121127, end: 20130108
  3. PACLITAXEL (NGX) (PACLITAXEL) [Suspect]
  4. PACLITAXEL (NGX) (PACLITAXEL) [Suspect]
  5. ABRAXANE [Suspect]
     Indication: NEOPLASM MALIGNANT
     Dates: start: 20130109, end: 20130129
  6. ABRAXANE [Suspect]
     Dates: start: 20130109, end: 20130129
  7. HALAVEN [Suspect]
     Indication: NEOPLASM MALIGNANT
  8. HALAVEN [Suspect]
  9. GEMZAR [Suspect]
     Indication: NEOPLASM MALIGNANT
  10. GEMZAR [Suspect]
  11. ADRIAMYCIN [Suspect]
     Indication: NEOPLASM MALIGNANT
  12. ADRIAMYCIN [Suspect]
  13. AROMASIN (EXEMESTANE) [Concomitant]

REACTIONS (4)
  - Neoplasm malignant [None]
  - Malignant neoplasm progression [None]
  - Stomatitis [None]
  - Drug ineffective [None]
